FAERS Safety Report 14125402 (Version 1)
Quarter: 2017Q4

REPORT INFORMATION
  Report Type: Spontaneous
  Country: US (occurrence: US)
  Receive Date: 20171025
  Receipt Date: 20171025
  Transmission Date: 20180321
  Serious: No
  Sender: FDA-Public Use
  Company Number: US-BAYER-2017-205548

PATIENT
  Sex: Female

DRUGS (1)
  1. GADAVIST [Suspect]
     Active Substance: GADOBUTROL
     Indication: DEAFNESS
     Dosage: UNK

REACTIONS (3)
  - Erythema [None]
  - Pruritus [None]
  - Hypertension [None]
